FAERS Safety Report 22650239 (Version 2)
Quarter: 2024Q4

REPORT INFORMATION
  Report Type: Spontaneous
  Country: CA (occurrence: CA)
  Receive Date: 20230628
  Receipt Date: 20241230
  Transmission Date: 20250114
  Serious: Yes (Other)
  Sender: B BRAUN
  Company Number: CA-B.Braun Medical Inc.-2143195

PATIENT
  Age: 65 Year
  Sex: Female
  Weight: 34 kg

DRUGS (28)
  1. THEOPHYLLINE IN DEXTROSE [Suspect]
     Active Substance: DEXTROSE MONOHYDRATE\THEOPHYLLINE\THEOPHYLLINE ANHYDROUS
  2. ASPIRIN [Suspect]
     Active Substance: ASPIRIN
  3. XOLAIR [Suspect]
     Active Substance: OMALIZUMAB
  4. TRAMADOL HYDROCHLORIDE [Suspect]
     Active Substance: TRAMADOL HYDROCHLORIDE
  5. MONTELUKAST SODIUM [Suspect]
     Active Substance: MONTELUKAST\MONTELUKAST SODIUM
  6. HYDROMORPHONE HYDROCHLORIDE [Suspect]
     Active Substance: HYDROMORPHONE HYDROCHLORIDE
  7. FOLIC ACID [Suspect]
     Active Substance: FOLIC ACID
  8. FLUTICASONE PROPIONATE\SALMETEROL XINAFOATE [Suspect]
     Active Substance: FLUTICASONE PROPIONATE\SALMETEROL XINAFOATE
  9. CALCIUM CARBONATE [Suspect]
     Active Substance: CALCIUM CARBONATE
  10. AMLODIPINE [Suspect]
     Active Substance: AMLODIPINE BESYLATE
  11. AMINOPHYLLINE [Suspect]
     Active Substance: AMINOPHYLLINE
  12. ACETAMINOPHEN [Suspect]
     Active Substance: ACETAMINOPHEN
  13. SINGULAIR [Suspect]
     Active Substance: MONTELUKAST SODIUM
  14. ROSUVASTATIN [Suspect]
     Active Substance: ROSUVASTATIN
  15. RITUXIMAB [Suspect]
     Active Substance: RITUXIMAB
  16. RISEDRONATE SODIUM [Suspect]
     Active Substance: RISEDRONATE SODIUM
  17. PREDNISONE [Suspect]
     Active Substance: PREDNISONE
  18. OMALIZUMAB [Suspect]
     Active Substance: OMALIZUMAB
  19. MOXIFLOXACIN [Suspect]
     Active Substance: MOXIFLOXACIN
  20. FOLATE SODIUM [Suspect]
     Active Substance: FOLATE SODIUM
  21. ERGOCALCIFEROL [Suspect]
     Active Substance: ERGOCALCIFEROL
  22. CLONAZEPAM [Suspect]
     Active Substance: CLONAZEPAM
  23. CIPROFLOXACIN HYDROCHLORIDE [Suspect]
     Active Substance: CIPROFLOXACIN HYDROCHLORIDE
  24. CALCIUM [Suspect]
     Active Substance: CALCIUM
  25. BECLOMETHASONE [Suspect]
     Active Substance: BECLOMETHASONE
  26. AMLODIPINE BESYLATE [Suspect]
     Active Substance: AMLODIPINE BESYLATE
  27. ADVAIR HFA [Suspect]
     Active Substance: FLUTICASONE PROPIONATE\SALMETEROL XINAFOATE
  28. TRAMADOL HYDROCHLORIDE [Suspect]
     Active Substance: TRAMADOL HYDROCHLORIDE

REACTIONS (12)
  - Asthma [Not Recovered/Not Resolved]
  - Wheezing [Not Recovered/Not Resolved]
  - Vomiting [Not Recovered/Not Resolved]
  - Respiratory tract infection [Not Recovered/Not Resolved]
  - Pneumonia [Not Recovered/Not Resolved]
  - Pain [Not Recovered/Not Resolved]
  - Oedema [Not Recovered/Not Resolved]
  - Malaise [Not Recovered/Not Resolved]
  - Dyspnoea [Not Recovered/Not Resolved]
  - Drug hypersensitivity [Not Recovered/Not Resolved]
  - Cough [Not Recovered/Not Resolved]
  - Chest pain [Not Recovered/Not Resolved]
